FAERS Safety Report 21242127 (Version 1)
Quarter: 2022Q3

REPORT INFORMATION
  Report Type: Spontaneous
  Country: CN (occurrence: CN)
  Receive Date: 20220823
  Receipt Date: 20220823
  Transmission Date: 20221026
  Serious: Yes (Other)
  Sender: FDA-Public Use
  Company Number: CN-Techdow-2022Techdow000049

PATIENT
  Age: 31 Year
  Sex: Female
  Weight: 52.5 kg

DRUGS (2)
  1. HEPARIN SODIUM [Suspect]
     Active Substance: HEPARIN SODIUM
     Indication: Anticoagulant therapy
  2. ARGATROBAN [Concomitant]
     Active Substance: ARGATROBAN
     Indication: Anticoagulant therapy

REACTIONS (8)
  - Thrombocytopenia [Recovered/Resolved]
  - Antithrombin III deficiency [Recovered/Resolved]
  - Haematuria [Recovered/Resolved]
  - Liver injury [Unknown]
  - Rash [Unknown]
  - Muscle twitching [Recovered/Resolved]
  - Seizure [Recovered/Resolved]
  - White matter lesion [Unknown]
